FAERS Safety Report 8136152-X (Version None)
Quarter: 2012Q1

REPORT INFORMATION
  Report Type: 
  Country: None (occurrence: None)
  Receive Date: 20120214
  Receipt Date: 20120209
  Transmission Date: 20120608
  Serious: Yes (Life-Threatening, Hospitalization, Other)
  Sender: FDA-Public Use
  Company Number: GXKR2012DE000807

PATIENT

DRUGS (7)
  1. SPIRONOLACTONE [Concomitant]
  2. DOXAZOSIN [Suspect]
     Indication: HYPERTENSION
     Dosage: 1X4 AND 1X2 MG DAILY PER OS
     Route: 048
     Dates: start: 20110601, end: 20110928
  3. CIPROFLOXACIN [Suspect]
     Indication: URINARY TRACT INFECTION BACTERIAL
     Dosage: 2X1 FILM-COATED TABLET AT 250 MG DAILY PER OS
     Route: 048
     Dates: start: 20110906, end: 20110915
  4. XIPAMIDE [Suspect]
     Dosage: 1X1 TABLET AT 10 MG DAILY PER OS
     Route: 048
     Dates: start: 20110805, end: 20110928
  5. AMLODIPINE [Concomitant]
  6. TORSEMIDE [Concomitant]
  7. DICLOFENAC [Suspect]
     Dosage: 1X1 PROLONGED-RELEASE CAPSULE AT 75 MG DAILY PER OS
     Route: 048
     Dates: start: 20110101, end: 20110928

REACTIONS (2)
  - RENAL FAILURE ACUTE [None]
  - OLIGURIA [None]
